FAERS Safety Report 10418429 (Version 1)
Quarter: 2014Q3

REPORT INFORMATION
  Report Type: Spontaneous
  Country: US (occurrence: US)
  Receive Date: 20140829
  Receipt Date: 20140829
  Transmission Date: 20150326
  Serious: Yes (Other)
  Sender: FDA-Public Use
  Company Number: US-SA-2014SA116567

PATIENT
  Age: 77 Year
  Sex: Female

DRUGS (3)
  1. NASACORT AQ [Suspect]
     Active Substance: TRIAMCINOLONE ACETONIDE
     Indication: SINUSITIS
     Dosage: DOSE: 2 SPRAYS EACH NARES
     Route: 045
  2. NASACORT AQ [Suspect]
     Active Substance: TRIAMCINOLONE ACETONIDE
     Indication: SINUSITIS
     Dosage: DOSE: 2 SPRAYS EACH NARES
     Route: 045
  3. NASACORT AQ [Suspect]
     Active Substance: TRIAMCINOLONE ACETONIDE
     Indication: SINUSITIS
     Dosage: DOSE: 2 SPRAYS EACH NARES
     Route: 045

REACTIONS (1)
  - Aneurysm [Unknown]
